FAERS Safety Report 13391709 (Version 2)
Quarter: 2017Q2

REPORT INFORMATION
  Report Type: Spontaneous
  Country: US (occurrence: US)
  Receive Date: 20170331
  Receipt Date: 20170428
  Transmission Date: 20170830
  Serious: Yes (Hospitalization, Other)
  Sender: FDA-Public Use
  Company Number: US-SAOL THERAPEUTICS-2017SAO00589

PATIENT
  Sex: Male

DRUGS (1)
  1. GABLOFEN [Suspect]
     Active Substance: BACLOFEN
     Dosage: 137.4 ?G, \DAY
     Route: 037

REACTIONS (5)
  - Device leakage [Unknown]
  - Implant site infection [Unknown]
  - Mechanical ventilation [Unknown]
  - Implant site haemorrhage [Unknown]
  - Foreign body [Unknown]

NARRATIVE: CASE EVENT DATE: 1999
